FAERS Safety Report 8170883-0 (Version None)
Quarter: 2012Q1

REPORT INFORMATION
  Report Type: 
  Country: None (occurrence: None)
  Receive Date: 20120228
  Receipt Date: 20120218
  Transmission Date: 20120608
  Serious: Yes (Other)
  Sender: FDA-Public Use
  Company Number: US-BRISTOL-MYERS SQUIBB COMPANY-16273039

PATIENT
  Age: 81 Year
  Sex: Male

DRUGS (5)
  1. LEVOTHYROXINE SODIUM [Concomitant]
  2. FOLIC ACID [Concomitant]
  3. ORENCIA [Suspect]
     Indication: RHEUMATOID ARTHRITIS
     Dosage: 750 MG: 29APR10,1000MG: 25MAY10,06JAN11
     Route: 042
     Dates: start: 20100429
  4. LEFLUNOMIDE [Suspect]
     Dates: start: 20100428, end: 20111102
  5. ATENOLOL [Concomitant]

REACTIONS (3)
  - LIVER FUNCTION TEST ABNORMAL [None]
  - PLATELET COUNT DECREASED [None]
  - WHITE BLOOD CELL COUNT DECREASED [None]
